FAERS Safety Report 25287917 (Version 2)
Quarter: 2025Q4

REPORT INFORMATION
  Report Type: Spontaneous
  Country: EU (occurrence: EU)
  Receive Date: 20250509
  Receipt Date: 20251225
  Transmission Date: 20260118
  Serious: Yes (Other)
  Sender: TEVA
  Company Number: EU-TEVA-VS-3327931

PATIENT
  Sex: Female

DRUGS (2)
  1. VERAPAMIL [Interacting]
     Active Substance: VERAPAMIL HYDROCHLORIDE
     Indication: Ovarian cancer
     Route: 065
  2. OLAPARIB [Interacting]
     Active Substance: OLAPARIB
     Indication: Ovarian cancer
     Route: 065

REACTIONS (3)
  - Fatigue [Unknown]
  - Drug interaction [Unknown]
  - Drug level increased [Unknown]
